FAERS Safety Report 18944202 (Version 1)
Quarter: 2021Q1

REPORT INFORMATION
  Report Type: Spontaneous
  Country: US (occurrence: US)
  Receive Date: 20210225
  Receipt Date: 20210225
  Transmission Date: 20210420
  Serious: Yes (Hospitalization)
  Sender: FDA-Public Use
  Company Number: None

PATIENT
  Age: 55 Year
  Sex: Male
  Weight: 69 kg

DRUGS (1)
  1. HALOPERIDOL (HALOPERIDOL 5MG/ML INJ) [Suspect]
     Active Substance: HALOPERIDOL
     Route: 042
     Dates: start: 20201114, end: 20201115

REACTIONS (3)
  - Angioedema [None]
  - Drug hypersensitivity [None]
  - Musculoskeletal stiffness [None]

NARRATIVE: CASE EVENT DATE: 20201116
